FAERS Safety Report 6510464-5 (Version None)
Quarter: 2009Q4

REPORT INFORMATION
  Report Type: 
  Country: None (occurrence: None)
  Receive Date: 20091222
  Receipt Date: 20091214
  Transmission Date: 20100525
  Serious: Yes (Other)
  Sender: FDA-Public Use
  Company Number: US-ELI_LILLY_AND_COMPANY-US200912003979

PATIENT
  Sex: Female
  Weight: 95.45 kg

DRUGS (3)
  1. HUMALOG [Suspect]
     Indication: TYPE 1 DIABETES MELLITUS
  2. LANTUS [Concomitant]
     Indication: TYPE 1 DIABETES MELLITUS
     Dosage: 70 U, DAILY (1/D)
     Route: 058
     Dates: end: 20070101
  3. LANTUS [Concomitant]
     Dosage: 60 U, 2/D
     Route: 058
     Dates: start: 20070101

REACTIONS (3)
  - EYE HAEMORRHAGE [None]
  - VISUAL ACUITY REDUCED [None]
  - WEIGHT INCREASED [None]
